FAERS Safety Report 8018916-6 (Version None)
Quarter: 2012Q1

REPORT INFORMATION
  Report Type: 
  Country: None (occurrence: None)
  Receive Date: 20120103
  Receipt Date: 20111220
  Transmission Date: 20120608
  Serious: Yes (Hospitalization)
  Sender: FDA-Public Use
  Company Number: US-UCBSA-048163

PATIENT
  Age: 48 Year
  Sex: Female
  Weight: 53.5 kg

DRUGS (20)
  1. PRIMIDONE [Concomitant]
     Indication: TREMOR
     Dates: start: 20110818
  2. PRILOSEC OTC [Concomitant]
     Indication: GASTROOESOPHAGEAL REFLUX DISEASE
     Dates: start: 20110818
  3. NADOLOL [Concomitant]
     Indication: VERTIGO
     Dates: start: 20111003
  4. NASONEX [Concomitant]
     Indication: HYPERSENSITIVITY
     Dates: start: 20071210
  5. PROCHLORPERAZINE [Concomitant]
     Indication: NAUSEA
     Dates: start: 20110920
  6. XANAX [Concomitant]
     Indication: ANXIETY
     Dosage: FREQUENCY: BED/AS NEEDED
     Dates: start: 20081031
  7. NADOLOL [Concomitant]
     Indication: TREMOR
     Dates: start: 20111003
  8. ZOFRAN ODT [Concomitant]
     Indication: NAUSEA
     Dates: start: 20110413
  9. WELLBUTRIN XL [Concomitant]
     Indication: DEPRESSION
     Dates: start: 20070521
  10. PLAQUENIL [Concomitant]
     Indication: RHEUMATOID ARTHRITIS
     Dates: start: 20070521
  11. CERTOLIZUMAB PEGOL [Suspect]
     Indication: RHEUMATOID ARTHRITIS
     Dosage: NO OF DOSES RECEIVED: 7
     Route: 058
     Dates: start: 20110915, end: 20111206
  12. PROZAC [Concomitant]
     Indication: DEPRESSION
     Dates: start: 20100908
  13. MIRALAX [Concomitant]
     Indication: CONSTIPATION
     Dates: start: 20110920
  14. BENEFIBER [Concomitant]
     Indication: CONSTIPATION
     Dates: start: 20110920
  15. GUAIFENESIN [Concomitant]
     Indication: RESPIRATORY TRACT CONGESTION
     Dates: start: 20110908
  16. TRAZODONE HCL [Concomitant]
     Indication: DEPRESSION
     Dosage: FREQUENCY: BED
     Dates: start: 20070521
  17. FIORICET [Concomitant]
     Indication: MIGRAINE
     Dosage: 50-325-40
     Dates: start: 20110214
  18. TYLENOL W/ CODEINE [Concomitant]
     Indication: PAIN
     Dosage: 300-30 MG
     Dates: start: 20110818
  19. NADOLOL [Concomitant]
     Indication: MIGRAINE
     Dates: start: 20111003
  20. CYCLOBENZAPRINE HCL [Concomitant]
     Indication: MUSCLE TIGHTNESS
     Dosage: 5-10 MG
     Dates: start: 20111123

REACTIONS (15)
  - PLEURAL EFFUSION [None]
  - NEUTROPHIL PERCENTAGE INCREASED [None]
  - HEPATIC ENZYME INCREASED [None]
  - SINUSITIS [None]
  - RED BLOOD CELL COUNT DECREASED [None]
  - WHITE BLOOD CELL COUNT INCREASED [None]
  - POSTOPERATIVE ADHESION [None]
  - BLOOD BILIRUBIN DECREASED [None]
  - BLOOD ALBUMIN DECREASED [None]
  - GLYCOSYLATED HAEMOGLOBIN DECREASED [None]
  - ALANINE AMINOTRANSFERASE INCREASED [None]
  - PLATELET COUNT INCREASED [None]
  - PNEUMONIA [None]
  - ASPARTATE AMINOTRANSFERASE INCREASED [None]
  - LYMPHOCYTE PERCENTAGE DECREASED [None]
